FAERS Safety Report 5779748-2 (Version None)
Quarter: 2008Q2

REPORT INFORMATION
  Report Type: 
  Country: None (occurrence: None)
  Receive Date: 20080617
  Receipt Date: 20080604
  Transmission Date: 20081010
  Serious: Yes (Other)
  Sender: FDA-Public Use
  Company Number: S08-CAN-00290-01

PATIENT
  Age: 30 Year
  Sex: Female

DRUGS (2)
  1. ESCITALOPRAM OXALATE [Suspect]
     Indication: PREMENSTRUAL SYNDROME
     Dosage: 20 MG QD PO
     Route: 048
     Dates: end: 20071201
  2. BIRTH CONTROL PILLS (NOS) [Concomitant]

REACTIONS (2)
  - COLITIS ULCERATIVE [None]
  - FREQUENT BOWEL MOVEMENTS [None]
